FAERS Safety Report 7530213-1 (Version None)
Quarter: 2011Q2

REPORT INFORMATION
  Report Type: 
  Country: None (occurrence: None)
  Receive Date: 20110607
  Receipt Date: 20110530
  Transmission Date: 20111010
  Serious: Yes (Hospitalization)
  Sender: FDA-Public Use
  Company Number: PHHY2011IT46388

PATIENT
  Age: 67 Year
  Sex: Male

DRUGS (1)
  1. AMIODARONE HCL [Suspect]
     Dosage: 200 MG, QW3

REACTIONS (12)
  - PERICARDIAL EFFUSION [None]
  - LYMPHADENOPATHY MEDIASTINAL [None]
  - HYPOAESTHESIA ORAL [None]
  - PNEUMONITIS [None]
  - NEUROPATHY PERIPHERAL [None]
  - PNEUMONIA [None]
  - RESPIRATION ABNORMAL [None]
  - RALES [None]
  - PLEURAL EFFUSION [None]
  - ASTHENIA [None]
  - PYREXIA [None]
  - CHEST PAIN [None]
